FAERS Safety Report 11319776 (Version 1)
Quarter: 2015Q3

REPORT INFORMATION
  Report Type: Spontaneous
  Country: US (occurrence: None)
  Receive Date: 20150728
  Receipt Date: 20150728
  Transmission Date: 20151125
  Serious: Yes (Other)
  Sender: FDA-Public Use
  Company Number: None

PATIENT
  Age: 32 Year
  Sex: Female
  Weight: 58.06 kg

DRUGS (1)
  1. XULANE [Suspect]
     Active Substance: ETHINYL ESTRADIOL\NORELGESTROMIN

REACTIONS (4)
  - Pregnancy with contraceptive patch [None]
  - Muscle spasms [None]
  - Breast pain [None]
  - Exposure during pregnancy [None]

NARRATIVE: CASE EVENT DATE: 20150725
